FAERS Safety Report 4479398-4 (Version None)
Quarter: 2004Q4

REPORT INFORMATION
  Report Type: 
  Country: None (occurrence: None)
  Receive Date: 20041015
  Receipt Date: 20040927
  Transmission Date: 20050328
  Serious: Yes (Death)
  Sender: FDA-Public Use
  Company Number: 2004236031US

PATIENT
  Age: 39 Year
  Sex: 0

DRUGS (2)
  1. XANAX [Suspect]
     Dosage: UNK
     Route: 065
  2. HYDROCODONE W/ACETAMINOPHEN (PARACETAMOL, HYDROCODONE BITARTRATE) [Suspect]
     Dosage: UNK
     Route: 065

REACTIONS (1)
  - MULTIPLE DRUG OVERDOSE [None]
